FAERS Safety Report 13616199 (Version 1)
Quarter: 2017Q2

REPORT INFORMATION
  Report Type: Spontaneous
  Country: US (occurrence: US)
  Receive Date: 20170605
  Receipt Date: 20170605
  Transmission Date: 20170830
  Serious: Yes (Hospitalization)
  Sender: FDA-Public Use
  Company Number: None

PATIENT
  Age: 60 Year
  Sex: Male
  Weight: 70.9 kg

DRUGS (1)
  1. OXALIPLATIN. [Suspect]
     Active Substance: OXALIPLATIN
     Indication: VASCULAR OPERATION
     Route: 042
     Dates: start: 20100112, end: 20110412

REACTIONS (2)
  - Angina pectoris [None]
  - Infusion related reaction [None]

NARRATIVE: CASE EVENT DATE: 20110412
